FAERS Safety Report 15005707 (Version 1)
Quarter: 2018Q2

REPORT INFORMATION
  Report Type: Spontaneous
  Country: US (occurrence: US)
  Receive Date: 20180521
  Receipt Date: 20180521
  Transmission Date: 20180711
  Serious: Yes (Hospitalization)
  Sender: FDA-Public Use
  Company Number: None

PATIENT
  Age: 63 Year
  Sex: Male
  Weight: 101.4 kg

DRUGS (11)
  1. ELIQUIS [Concomitant]
     Active Substance: APIXABAN
  2. LASIX [Concomitant]
     Active Substance: FUROSEMIDE
  3. APRESOLINE HYDROCHLORIDE [Concomitant]
     Active Substance: HYDRALAZINE HYDROCHLORIDE
  4. SILVER [Concomitant]
     Active Substance: SILVER
  5. COREG [Concomitant]
     Active Substance: CARVEDILOL
  6. CORLANOR [Concomitant]
     Active Substance: IVABRADINE HYDROCHLORIDE
  7. TRADJENTA [Suspect]
     Active Substance: LINAGLIPTIN
     Indication: DIABETES MELLITUS
     Dosage: CHRONIC   DATES OF USE
     Route: 048
  8. FE [Concomitant]
     Active Substance: IRON
  9. CENTRUM [Concomitant]
     Active Substance: VITAMINS
  10. GLIMEPIRIDE. [Suspect]
     Active Substance: GLIMEPIRIDE
     Indication: DIABETES MELLITUS
     Dosage: CHRONIC   DATES OF USE
     Route: 048
  11. ZYLOPRIM [Suspect]
     Active Substance: ALLOPURINOL

REACTIONS (4)
  - Hypoglycaemia [None]
  - Acute kidney injury [None]
  - Hypophagia [None]
  - Hyperkalaemia [None]

NARRATIVE: CASE EVENT DATE: 20180123
